FAERS Safety Report 8615350-2 (Version None)
Quarter: 2012Q3

REPORT INFORMATION
  Report Type: 
  Country: None (occurrence: None)
  Receive Date: 20120823
  Receipt Date: 20120817
  Transmission Date: 20120928
  Serious: Yes (Hospitalization)
  Sender: FDA-Public Use
  Company Number: US-B.I. PHARMACEUTICALS,INC./RIDGEFIELD-2012-BP-16215BP

PATIENT
  Sex: Female

DRUGS (15)
  1. CAPTOPRIL [Concomitant]
     Indication: HYPERTENSION
     Dosage: 100 MG
     Route: 048
     Dates: start: 20050101
  2. DIGOXIN [Concomitant]
     Indication: ATRIAL FIBRILLATION
     Dosage: 0.125 MG
     Route: 048
     Dates: start: 20120501
  3. CALCIUM + D [Concomitant]
     Indication: SUPPLEMENTATION THERAPY
     Dosage: 1200 MG
     Route: 048
     Dates: start: 20080101
  4. ZOLPIDEM [Concomitant]
     Indication: INSOMNIA
     Dosage: 5 MG
     Route: 048
     Dates: start: 20000101
  5. POTASSIUM [Concomitant]
     Indication: ELECTROLYTE SUBSTITUTION THERAPY
     Dosage: 30 MEQ
     Route: 048
     Dates: start: 20110101
  6. PRADAXA [Concomitant]
     Indication: ATRIAL FIBRILLATION
     Dosage: 150 MG
     Route: 048
     Dates: start: 20110201
  7. SPIRIVA [Suspect]
     Indication: CHRONIC OBSTRUCTIVE PULMONARY DISEASE
     Dosage: 18 MCG
     Route: 055
     Dates: start: 20110101
  8. CILOSTAZOL [Concomitant]
     Indication: PAIN IN EXTREMITY
     Dosage: 200 MG
     Route: 048
     Dates: start: 20050101
  9. IRON [Concomitant]
     Indication: SUPPLEMENTATION THERAPY
     Route: 048
     Dates: start: 20110101
  10. CARVEDILOL [Concomitant]
     Indication: CORONARY ARTERY DISEASE
     Dosage: 25 MG
     Route: 048
     Dates: start: 20120501
  11. LASIX [Concomitant]
     Indication: CARDIAC FAILURE CONGESTIVE
     Dosage: 40 MG
     Route: 048
     Dates: start: 20110101
  12. LESCOL [Concomitant]
     Indication: BLOOD CHOLESTEROL INCREASED
     Dosage: 40 MG
     Route: 048
     Dates: start: 20110101
  13. HYDROXYCHLOROQUINE SULFATE [Concomitant]
     Indication: SYSTEMIC LUPUS ERYTHEMATOSUS
     Dosage: 400 MG
     Route: 048
     Dates: start: 20080101
  14. ASPIRIN [Concomitant]
     Indication: PROPHYLAXIS
     Dosage: 162 MG
     Route: 048
     Dates: start: 20120501
  15. CLONIDINE [Concomitant]
     Indication: HYPERTENSION
     Dates: start: 20110101

REACTIONS (2)
  - PRODUCT QUALITY ISSUE [None]
  - MYOCARDIAL INFARCTION [None]
